FAERS Safety Report 7445201-3 (Version None)
Quarter: 2011Q2

REPORT INFORMATION
  Report Type: 
  Country: None (occurrence: None)
  Receive Date: 20110429
  Receipt Date: 20110419
  Transmission Date: 20111010
  Serious: Yes (Other)
  Sender: FDA-Public Use
  Company Number: ES-JNJFOC-20110407715

PATIENT
  Sex: Female
  Weight: 55 kg

DRUGS (4)
  1. COD LIVER OIL [Concomitant]
     Route: 065
  2. ORTHO EVRA [Suspect]
     Indication: CONTRACEPTION
     Route: 062
  3. ALL OTHER THERAPEUTIC PRODUCT [Concomitant]
     Indication: FLUID RETENTION
     Route: 065
  4. YEAST [Concomitant]
     Route: 065

REACTIONS (3)
  - DYSPNOEA [None]
  - CHEST PAIN [None]
  - GASTRITIS [None]
